FAERS Safety Report 7065249-0 (Version None)
Quarter: 2010Q4

REPORT INFORMATION
  Report Type: 
  Country: None (occurrence: None)
  Receive Date: 20101027
  Receipt Date: 20101020
  Transmission Date: 20110411
  Serious: Yes (Other)
  Sender: FDA-Public Use
  Company Number: FR-KINGPHARMUSA00001-K201001304

PATIENT
  Age: 56 Year
  Sex: Female

DRUGS (4)
  1. ALTACE [Suspect]
     Dosage: 1.25 MG, QD
     Route: 048
     Dates: start: 20100722, end: 20100803
  2. AMPICILLIN SODIUM/SULBACTAM SODIUM [Concomitant]
     Dosage: UNK
     Dates: start: 20100708
  3. LANSOPRAZOLE [Concomitant]
     Dosage: UNK
     Dates: start: 20070101
  4. LORATADINE [Concomitant]
     Dosage: UNK
     Dates: start: 20090424

REACTIONS (3)
  - DYSPNOEA [None]
  - RASH [None]
  - WHEEZING [None]
